FAERS Safety Report 16474123 (Version 1)
Quarter: 2019Q3

REPORT INFORMATION
  Report Type: Spontaneous
  Country: US (occurrence: US)
  Receive Date: 20190624
  Receipt Date: 20190624
  Transmission Date: 20191004
  Serious: Yes (Other)
  Sender: FDA-Public Use
  Company Number: None

PATIENT
  Age: 61 Year
  Sex: Female
  Weight: 72 kg

DRUGS (2)
  1. SLEEP APNEA MACHINE [Concomitant]
  2. ARMOUR THYROID [Suspect]
     Active Substance: THYROID, PORCINE
     Indication: THYROID THERAPY
     Dosage: ?          QUANTITY:90 TABLET(S);?
     Route: 048
     Dates: start: 20190426, end: 20190621

REACTIONS (5)
  - Product quality issue [None]
  - Drug ineffective [None]
  - Hypothyroidism [None]
  - Headache [None]
  - Hypoglycaemia [None]

NARRATIVE: CASE EVENT DATE: 20190515
